FAERS Safety Report 18153294 (Version 2)
Quarter: 2020Q3

REPORT INFORMATION
  Report Type: Spontaneous
  Country: US (occurrence: US)
  Receive Date: 20200815
  Receipt Date: 20200919
  Transmission Date: 20201103
  Serious: No
  Sender: FDA-Public Use
  Company Number: US-TEVA-2020-US-1815921

PATIENT
  Age: 73 Year
  Sex: Female

DRUGS (2)
  1. FLUTICASONE PROPIONATE / SALMETEROL XINOFOATE TEVA [Suspect]
     Active Substance: FLUTICASONE PROPIONATE\SALMETEROL XINAFOATE
     Indication: DYSPNOEA
     Dosage: 113 MCG / 14 MCG
     Route: 065
  2. LUSPATERCEPT. [Concomitant]
     Active Substance: LUSPATERCEPT
     Route: 065

REACTIONS (1)
  - Drug ineffective [Unknown]

NARRATIVE: CASE EVENT DATE: 20200731
